FAERS Safety Report 7398389-7 (Version None)
Quarter: 2011Q2

REPORT INFORMATION
  Report Type: 
  Country: None (occurrence: None)
  Receive Date: 20110406
  Receipt Date: 20080722
  Transmission Date: 20111010
  Serious: Yes (Death, Hospitalization, Other)
  Sender: FDA-Public Use
  Company Number: US-BAYER-200828598NA

PATIENT
  Sex: Male
  Weight: 84 kg

DRUGS (32)
  1. ACETYLSALICYLIC ACID SRT [Concomitant]
     Dosage: DAILY
     Route: 048
  2. PHENYLEPHRINE HCL [Concomitant]
     Dosage: 100 MG, UNK
     Route: 042
     Dates: start: 19980109, end: 19980109
  3. TRASYLOL [Suspect]
     Indication: CORONARY ARTERY BYPASS
     Dosage: 100 MG LOADING DOSE
     Route: 042
     Dates: start: 19980109, end: 19980109
  4. HEPARIN [Concomitant]
     Dosage: 7000 U, UNK
     Route: 042
     Dates: start: 19980109, end: 19980109
  5. LIDOCAINE [Concomitant]
     Dosage: 100 MG BOLUS
     Route: 042
     Dates: start: 19980109, end: 19980109
  6. POTASSIUM CHLORIDE [Concomitant]
     Dosage: 20 MEQ, UNK
     Route: 042
     Dates: start: 19980109, end: 19980109
  7. GLUCOPHAGE [Concomitant]
     Dosage: 500 MG, TID
     Route: 048
  8. FELDENE [Concomitant]
     Dosage: 20 MG, QD
     Route: 048
  9. CALCIUM CHLORIDE [Concomitant]
     Dosage: 1 G, UNK
     Route: 042
     Dates: start: 19980109, end: 19980109
  10. DOPAMINE [Concomitant]
     Dosage: 20 ML, UNK
     Route: 042
     Dates: start: 19980109, end: 19980109
  11. PROTAMINE SULFATE [Concomitant]
     Dosage: 100 MG
     Route: 042
     Dates: start: 19980109, end: 19980109
  12. TRASYLOL [Suspect]
     Indication: AORTIC VALVE REPLACEMENT
     Dosage: 50 MG/HR INFUSION
     Route: 042
     Dates: start: 19980109, end: 19980109
  13. QUININE SULFATE [Concomitant]
     Dosage: 200 MG, QD
     Route: 048
  14. VERSED [Concomitant]
     Dosage: 15 MG, UNK
     Route: 042
     Dates: start: 19980109, end: 19980109
  15. PAMELOR [Concomitant]
     Dosage: 15 MG, UNK
     Dates: start: 19980109, end: 19980109
  16. TRASYLOL [Suspect]
     Indication: INTRA-AORTIC BALLOON PLACEMENT
  17. PRAVACHOL [Concomitant]
     Dosage: 20 MG, QD
     Route: 048
  18. FRESH FROZEN PLASMA [Concomitant]
     Dosage: 1 U, UNK
     Route: 042
     Dates: start: 19980109, end: 19980109
  19. GLUCOTROL [Concomitant]
     Dosage: 10 MG, TID
     Route: 048
  20. PRINIVIL [Concomitant]
     Dosage: 10 MG, QD
     Route: 048
  21. CHLORPHENIRAMINE MALEATE [Concomitant]
     Dosage: 4 MG, UNK
     Route: 048
  22. BICARBONAT [Concomitant]
     Dosage: 1 AMPULE
     Route: 042
     Dates: start: 19980109, end: 19980109
  23. BICARBONAT [Concomitant]
     Dosage: 2 AMPULES
     Route: 042
     Dates: start: 19980109, end: 19980109
  24. NEO-SYNEPHRINOL [Concomitant]
     Dosage: 2.0 MG/AS NEEDED
     Route: 042
     Dates: start: 19980109, end: 19980109
  25. DOBUTAMINE HCL [Concomitant]
     Dosage: 30 ML, UNK
     Route: 042
     Dates: start: 19980109, end: 19980109
  26. RED BLOOD CELLS [Concomitant]
     Dosage: 1 U, UNK
     Route: 042
     Dates: start: 19980109, end: 19980109
  27. CARDIZEM CD [Concomitant]
     Dosage: 300 MG, QD
     Route: 048
  28. ISORDIL [Concomitant]
     Dosage: 10 MG, TID
     Route: 048
  29. HEPARIN [Concomitant]
     Dosage: 20000 U
     Route: 042
     Dates: start: 19980109, end: 19980109
  30. EPINEPHRINE [Concomitant]
     Dosage: 2.8 ML, UNK
     Route: 042
     Dates: start: 19980109, end: 19980109
  31. PROTAMINE SULFATE [Concomitant]
     Dosage: 450 MG, UNK
     Route: 042
     Dates: start: 19980109, end: 19980109
  32. RED BLOOD CELLS [Concomitant]
     Dosage: 2 U
     Route: 042
     Dates: start: 19980109, end: 19980109

REACTIONS (10)
  - THROMBOSIS [None]
  - UNEVALUABLE EVENT [None]
  - FEAR [None]
  - PAIN [None]
  - ANXIETY [None]
  - STRESS [None]
  - ANHEDONIA [None]
  - EMOTIONAL DISTRESS [None]
  - DEATH [None]
  - MULTI-ORGAN FAILURE [None]
